FAERS Safety Report 9138756 (Version 2)
Quarter: 2013Q4

REPORT INFORMATION
  Report Type: Spontaneous
  Country: NL (occurrence: NL)
  Receive Date: 20130305
  Receipt Date: 20131211
  Transmission Date: 20140711
  Serious: Yes (Death, Other)
  Sender: FDA-Public Use
  Company Number: NL-BAYER-2013-027396

PATIENT
  Age: 19 Year
  Sex: Female
  Weight: 73 kg

DRUGS (3)
  1. YASMIN [Suspect]
     Indication: ACNE
     Dosage: UNK
     Route: 048
     Dates: start: 20100622
  2. RISPERDAL [Suspect]
     Indication: PSYCHOTIC DISORDER
     Dosage: 1 MG, BID
     Route: 048
     Dates: start: 20111121
  3. LORAZEPAM [Concomitant]
     Dosage: 2 MG, QD
     Route: 048

REACTIONS (4)
  - Pulmonary embolism [Fatal]
  - Embolism [Fatal]
  - Thrombosis [None]
  - Dyspnoea [Fatal]
